FAERS Safety Report 4831012-1 (Version None)
Quarter: 2005Q4

REPORT INFORMATION
  Report Type: 
  Country: None (occurrence: None)
  Receive Date: 20051115
  Receipt Date: 20051115
  Transmission Date: 20060501
  Serious: No
  Sender: FDA-Public Use
  Company Number: None

PATIENT
  Age: 54 Year
  Sex: Male
  Weight: 51.2565 kg

DRUGS (7)
  1. XIGRIS [Suspect]
     Indication: NECROTISING FASCIITIS
     Dosage: 2563 MCG/HR IV
     Route: 042
     Dates: start: 20050423, end: 20050424
  2. FRAGMIN [Suspect]
     Dosage: 5000 UNITS SC DAILY
     Route: 058
     Dates: start: 20050422
  3. FRAGMIN [Suspect]
     Dosage: 5000 UNITS SC DAILY
     Route: 058
     Dates: start: 20050423
  4. LEVAQUIN [Concomitant]
  5. CLINDAMYCIN [Concomitant]
  6. VANCOMYCIN [Concomitant]
  7. PROTONIX [Concomitant]

REACTIONS (4)
  - GASTROINTESTINAL HAEMORRHAGE [None]
  - HAEMATEMESIS [None]
  - OCCULT BLOOD POSITIVE [None]
  - WOUND SECRETION [None]
